FAERS Safety Report 24875603 (Version 1)
Quarter: 2025Q1

REPORT INFORMATION
  Report Type: Other
  Country: PE (occurrence: PE)
  Receive Date: 20250122
  Receipt Date: 20250122
  Transmission Date: 20250409
  Serious: Yes (Hospitalization)
  Sender: B BRAUN
  Company Number: PE-B.Braun Medical Inc.-2169588

PATIENT
  Age: 86 Year
  Sex: Female

DRUGS (13)
  1. POTASSIUM CHLORIDE [Suspect]
     Active Substance: POTASSIUM CHLORIDE
     Indication: Mineral supplementation
  2. METFORMIN [Concomitant]
     Active Substance: METFORMIN HYDROCHLORIDE
  3. PAMIDRONATE [Concomitant]
     Active Substance: PAMIDRONATE DISODIUM
  4. INSULIN NOS [Concomitant]
     Active Substance: INSULIN NOS
  5. POTASSIUM [Concomitant]
     Active Substance: POTASSIUM
  6. NIFEDIPINE [Concomitant]
     Active Substance: NIFEDIPINE
  7. HYDROCORTISONE [Concomitant]
     Active Substance: HYDROCORTISONE
  8. SODIUM CHLORIDE [Concomitant]
     Active Substance: SODIUM CHLORIDE
  9. FUROSEMIDE [Concomitant]
     Active Substance: FUROSEMIDE
  10. CEFTRIAXONE [Concomitant]
     Active Substance: CEFTRIAXONE
  11. CHOLECALCIFEROL [Concomitant]
     Active Substance: CHOLECALCIFEROL
  12. DILTIAZEM [Concomitant]
     Active Substance: DILTIAZEM
  13. ENALAPRIL [Concomitant]
     Active Substance: ENALAPRIL

REACTIONS (1)
  - Drug ineffective [Unknown]
